FAERS Safety Report 23176540 (Version 1)
Quarter: 2023Q4

REPORT INFORMATION
  Report Type: Spontaneous
  Country: US (occurrence: None)
  Receive Date: 20231110
  Receipt Date: 20231110
  Transmission Date: 20240110
  Serious: Yes (Disabling)
  Sender: FDA-Public Use
  Company Number: None

PATIENT
  Age: 66 Year
  Sex: Female
  Weight: 67.5 kg

DRUGS (5)
  1. ORENCIA [Suspect]
     Active Substance: ABATACEPT
     Indication: Rheumatoid arthritis
     Dosage: OTHER QUANTITY : 4 INJECTION(S);?OTHER FREQUENCY : WEEKLY;?
     Route: 030
     Dates: start: 20170320, end: 20230227
  2. METHOTREXATE [Suspect]
     Active Substance: METHOTREXATE
  3. MELOXICAM [Concomitant]
     Active Substance: MELOXICAM
  4. FAMOTIDINE [Concomitant]
     Active Substance: FAMOTIDINE
  5. Zyertic [Concomitant]

REACTIONS (2)
  - Rash [None]
  - Immune system disorder [None]

NARRATIVE: CASE EVENT DATE: 20220810
